FAERS Safety Report 4633281-X (Version None)
Quarter: 2005Q2

REPORT INFORMATION
  Report Type: 
  Country: None (occurrence: None)
  Receive Date: 20050408
  Receipt Date: 20050405
  Transmission Date: 20051028
  Serious: No
  Sender: FDA-Public Use
  Company Number: 2005PK00258

PATIENT
  Age: 20 Year
  Sex: Male
  Weight: 80 kg

DRUGS (2)
  1. NAROPIN [Suspect]
     Indication: ANAESTHESIA
  2. XYLONEST [Suspect]
     Indication: ANAESTHESIA

REACTIONS (2)
  - CONVULSION [None]
  - MEDICATION ERROR [None]
